FAERS Safety Report 6436801-8 (Version None)
Quarter: 2009Q4

REPORT INFORMATION
  Report Type: 
  Country: None (occurrence: None)
  Receive Date: 20091109
  Receipt Date: 20091029
  Transmission Date: 20100525
  Serious: Yes (Disabling, Other)
  Sender: FDA-Public Use
  Company Number: 2009AL006956

PATIENT
  Sex: Female

DRUGS (1)
  1. METOCLOPRAMIDE [Suspect]

REACTIONS (6)
  - ANXIETY [None]
  - DEFORMITY [None]
  - DYSKINESIA [None]
  - ECONOMIC PROBLEM [None]
  - INJURY [None]
  - PAIN [None]
